FAERS Safety Report 5997543-6 (Version None)
Quarter: 2008Q4

REPORT INFORMATION
  Report Type: 
  Country: None (occurrence: None)
  Receive Date: 20081212
  Receipt Date: 20081113
  Transmission Date: 20090506
  Serious: No
  Sender: FDA-Public Use
  Company Number: US-ABBOTT-08P-163-0488053-00

PATIENT
  Sex: Female
  Weight: 56.296 kg

DRUGS (5)
  1. HUMIRA [Suspect]
     Indication: RHEUMATOID ARTHRITIS
     Dosage: UNSURE OF STRENGTH
     Route: 058
     Dates: start: 20030101
  2. SYNTHROID [Concomitant]
     Indication: HYPOTHYROIDISM
  3. NORVASC [Concomitant]
     Indication: HYPERTENSION
     Route: 048
  4. FLUOXETINE [Concomitant]
     Indication: DEPRESSION
     Route: 048
  5. PRAVASTATIN [Concomitant]
     Indication: BLOOD CHOLESTEROL INCREASED
     Route: 048

REACTIONS (1)
  - BASAL CELL CARCINOMA [None]
